FAERS Safety Report 15596291 (Version 2)
Quarter: 2018Q4

REPORT INFORMATION
  Report Type: Report from Study
  Country: BR (occurrence: BR)
  Receive Date: 20181107
  Receipt Date: 20181205
  Transmission Date: 20190205
  Serious: Yes (Hospitalization, Other)
  Sender: FDA-Public Use
  Company Number: PHHY2018BR072213

PATIENT
  Sex: Male
  Weight: 59 kg

DRUGS (1)
  1. EXJADE [Suspect]
     Active Substance: DEFERASIROX
     Indication: IRON OVERLOAD
     Dosage: UNK
     Route: 065
     Dates: start: 2018

REACTIONS (4)
  - Cholestasis [Unknown]
  - Renal disorder [Unknown]
  - Bile duct obstruction [Not Recovered/Not Resolved]
  - Memory impairment [Not Recovered/Not Resolved]
